FAERS Safety Report 9026291 (Version 2)
Quarter: 2014Q1

REPORT INFORMATION
  Report Type: Report from Study
  Country: NL (occurrence: NL)
  Receive Date: 20130123
  Receipt Date: 20140313
  Transmission Date: 20141002
  Serious: Yes (Hospitalization)
  Sender: FDA-Public Use
  Company Number: PHHY2013NL004530

PATIENT
  Sex: Male
  Weight: 70.3 kg

DRUGS (10)
  1. ZOMETA [Suspect]
     Indication: METASTASES TO BONE
     Dosage: 4 MG/100 ML, ONCE IN 28 DAYS
     Route: 042
  2. ZOMETA [Suspect]
     Dosage: 4 MG/100 ML, ONCE IN 28 DAYS
     Route: 042
     Dates: start: 20130121
  3. MACROGOL [Concomitant]
     Dosage: UNK UKN, UNK
  4. PARACETAMOL [Concomitant]
     Dosage: UNK UKN, UNK
  5. PANTOPRAZOLE [Concomitant]
     Dosage: UNK UKN, UNK
  6. OXYCODON [Concomitant]
     Dosage: UNK UKN, UNK
  7. CARBASALATE CALCIUM [Concomitant]
     Dosage: UNK UKN, UNK
  8. DOXAZOSINE [Concomitant]
     Dosage: UNK UKN, UNK
  9. DIPYRIDAMOLE [Concomitant]
     Dosage: UNK UKN, UNK
  10. BICALUTAMIDE [Concomitant]
     Dosage: UNK UKN, UNK

REACTIONS (2)
  - Bone pain [Recovering/Resolving]
  - Gait disturbance [Recovering/Resolving]
